FAERS Safety Report 5874243-4 (Version None)
Quarter: 2008Q3

REPORT INFORMATION
  Report Type: 
  Country: None (occurrence: None)
  Receive Date: 20080908
  Receipt Date: 20080825
  Transmission Date: 20090109
  Serious: Yes (Hospitalization)
  Sender: FDA-Public Use
  Company Number: JP-ELI_LILLY_AND_COMPANY-JP200808006035

PATIENT
  Age: 60 Year
  Sex: Female

DRUGS (5)
  1. ALIMTA [Suspect]
     Indication: PLEURAL MESOTHELIOMA MALIGNANT
     Dosage: 500 MG/M2, OTHER
     Route: 042
     Dates: start: 20080822, end: 20080822
  2. LASIX [Concomitant]
     Indication: POLYURIA
     Route: 048
     Dates: start: 20080820
  3. KYTRIL - FOR INFUSION [Concomitant]
     Indication: PROPHYLAXIS OF NAUSEA AND VOMITING
     Route: 042
     Dates: start: 20080822, end: 20080822
  4. PANVITAN [Concomitant]
     Dosage: UNK, UNK
     Route: 048
     Dates: start: 20080801
  5. HYDROXOCOBALAMIN ACETATE [Concomitant]
     Route: 065
     Dates: start: 20080801

REACTIONS (1)
  - ANAPHYLACTOID REACTION [None]
